FAERS Safety Report 7397346-4 (Version None)
Quarter: 2011Q2

REPORT INFORMATION
  Report Type: 
  Country: None (occurrence: None)
  Receive Date: 20110406
  Receipt Date: 20110401
  Transmission Date: 20111010
  Serious: No
  Sender: FDA-Public Use
  Company Number: US-PFIZER INC-2011073298

PATIENT

DRUGS (1)
  1. PROTONIX [Suspect]
     Dosage: UNK
     Route: 042

REACTIONS (3)
  - INFUSION SITE EXTRAVASATION [None]
  - FURUNCLE [None]
  - SKIN SWELLING [None]
